FAERS Safety Report 20784584 (Version 1)
Quarter: 2022Q2

REPORT INFORMATION
  Report Type: Spontaneous
  Country: US (occurrence: US)
  Receive Date: 20220504
  Receipt Date: 20220504
  Transmission Date: 20220721
  Serious: No
  Sender: FDA-Public Use
  Company Number: US-ELI_LILLY_AND_COMPANY-US202205000999

PATIENT
  Sex: Female

DRUGS (1)
  1. BASAGLAR [Suspect]
     Active Substance: INSULIN GLARGINE
     Indication: Type 2 diabetes mellitus
     Dosage: 28 U, UNKNOWN
     Route: 058
     Dates: start: 2016

REACTIONS (2)
  - Glycosylated haemoglobin decreased [Unknown]
  - Glycosylated haemoglobin increased [Recovered/Resolved]
